FAERS Safety Report 8046676-1 (Version None)
Quarter: 2012Q1

REPORT INFORMATION
  Report Type: 
  Country: None (occurrence: None)
  Receive Date: 20120115
  Receipt Date: 20120102
  Transmission Date: 20120608
  Serious: Yes (Death)
  Sender: FDA-Public Use
  Company Number: US-BAYER-2012-002583

PATIENT
  Age: 62 Year
  Sex: Female

DRUGS (18)
  1. METOLAZONE [Suspect]
  2. OMEPRAZOLE [Suspect]
  3. LOVASTATIN [Suspect]
  4. FAMOTIDINE [Suspect]
  5. DOCUSATE SODIUM [Suspect]
  6. INSULIN [Suspect]
  7. SALICYLATES [Suspect]
  8. GABAPENTIN [Suspect]
  9. FLUTICASONE PROPIONATE/SALMETEROL [Suspect]
  10. CITALOPRAM HYDROBROMIDE [Suspect]
  11. IRON [Suspect]
  12. FUROSEMIDE [Suspect]
  13. ACE INHIBITOR NOS [Suspect]
  14. ALBUTEROL SULFATE AND IPRATROPIUM BROMIDE [Suspect]
  15. METFORMIN HCL [Suspect]
  16. AMLODIPINE [Suspect]
  17. METOPROLOL TARTRATE [Suspect]
  18. CLONIDINE [Suspect]

REACTIONS (1)
  - TOXICITY TO VARIOUS AGENTS [None]
